FAERS Safety Report 16645609 (Version 2)
Quarter: 2019Q3

REPORT INFORMATION
  Report Type: Spontaneous
  Country: DE (occurrence: DE)
  Receive Date: 20190730
  Receipt Date: 20190822
  Transmission Date: 20191004
  Serious: Yes (Other)
  Sender: FDA-Public Use
  Company Number: DE-UCBSA-2019031150

PATIENT
  Sex: Female

DRUGS (4)
  1. ASPIRIN. [Concomitant]
     Active Substance: ASPIRIN
  2. CLOPIDOGREL [Concomitant]
     Active Substance: CLOPIDOGREL BISULFATE
  3. VIMPAT [Suspect]
     Active Substance: LACOSAMIDE
     Indication: PRODUCT USED FOR UNKNOWN INDICATION
     Dosage: 150 MILLIGRAM, 2X/DAY (BID)
     Dates: start: 201809
  4. VIMPAT [Suspect]
     Active Substance: LACOSAMIDE
     Dosage: 100MG IN THE MORNING AND 50MG IN THE EVENING

REACTIONS (5)
  - Pruritus [Unknown]
  - Dizziness [Unknown]
  - Off label use [Unknown]
  - Rash generalised [Not Recovered/Not Resolved]
  - Headache [Unknown]
